FAERS Safety Report 9088762 (Version 1)
Quarter: 2013Q1

REPORT INFORMATION
  Report Type: Report from Study
  Country: US (occurrence: US)
  Receive Date: 20130130
  Receipt Date: 20130130
  Transmission Date: 20140127
  Serious: Yes (Hospitalization)
  Sender: FDA-Public Use
  Company Number: US-ABBOTT-12P-163-0972396-00

PATIENT
  Age: 83 Year
  Sex: Female

DRUGS (10)
  1. HUMIRA 40 MG/0.8 ML PEN [Suspect]
     Indication: CROHN^S DISEASE
     Dates: start: 201205
  2. SYNTHROID [Concomitant]
     Indication: HYPOTHYROIDISM
  3. NORVASC [Concomitant]
     Indication: HYPERTENSION
  4. DIOVAN [Concomitant]
     Indication: PRODUCT USED FOR UNKNOWN INDICATION
     Dosage: 160-12.5MG
  5. ATENOLOL [Concomitant]
     Indication: HYPERTENSION
     Dosage: AT BEDTIME
  6. PREDNISONE [Concomitant]
     Indication: CROHN^S DISEASE
  7. PROTONIX [Concomitant]
     Indication: GASTROOESOPHAGEAL REFLUX DISEASE
  8. KLOR-CON [Concomitant]
     Indication: PRODUCT USED FOR UNKNOWN INDICATION
  9. ATIVAN [Concomitant]
     Indication: INSOMNIA
     Dosage: AT BEDTIME
  10. ZOLOFT [Concomitant]
     Indication: MOOD SWINGS

REACTIONS (3)
  - Abdominal pain lower [Recovered/Resolved]
  - Candida infection [Unknown]
  - Diarrhoea [Not Recovered/Not Resolved]
